FAERS Safety Report 18096779 (Version 1)
Quarter: 2020Q3

REPORT INFORMATION
  Report Type: Spontaneous
  Country: US (occurrence: US)
  Receive Date: 20200730
  Receipt Date: 20200730
  Transmission Date: 20201103
  Serious: Yes (Disabling)
  Sender: FDA-Public Use
  Company Number: None

PATIENT
  Age: 59 Year
  Sex: Male
  Weight: 83 kg

DRUGS (4)
  1. GIAPREZA [Suspect]
     Active Substance: ANGIOTENSIN II
     Indication: BLOOD PRESSURE ABNORMAL
     Dosage: ?          OTHER FREQUENCY:TITRATABLE;?
     Route: 041
     Dates: start: 20200611, end: 20200612
  2. VASOPRESSIN. [Suspect]
     Active Substance: VASOPRESSIN
     Dates: start: 20200611, end: 20200623
  3. EPINEPHRINE. [Suspect]
     Active Substance: EPINEPHRINE
     Dates: start: 20200610, end: 20200716
  4. PHENYLEPHRINE [Suspect]
     Active Substance: PHENYLEPHRINE HYDROCHLORIDE
     Dates: start: 20200611, end: 20200716

REACTIONS (2)
  - Extremity necrosis [None]
  - Sepsis [None]

NARRATIVE: CASE EVENT DATE: 20200613
